FAERS Safety Report 7445416-4 (Version None)
Quarter: 2011Q2

REPORT INFORMATION
  Report Type: 
  Country: None (occurrence: None)
  Receive Date: 20110429
  Receipt Date: 20110419
  Transmission Date: 20111010
  Serious: Yes (Hospitalization, Other)
  Sender: FDA-Public Use
  Company Number: PHHY2011FR34102

PATIENT
  Sex: Male

DRUGS (19)
  1. ACETAMINOPHEN [Concomitant]
     Dosage: 1000 MG, TID
     Route: 048
  2. INIPOMP [Concomitant]
     Dosage: 20 MG, QD
     Route: 048
  3. EXELON [Suspect]
     Dosage: 0.5 DF, DAILY
     Route: 062
     Dates: end: 20100527
  4. ATENOLOL [Suspect]
     Dosage: 25 MG, QD
     Route: 048
     Dates: start: 20100526, end: 20100527
  5. TENORMIN [Suspect]
     Dosage: HALF A TABLET ONCE DAILY
  6. LYRICA [Concomitant]
     Dosage: 300 MG, BID
     Route: 048
  7. SERESTA [Concomitant]
     Indication: SLEEP DISORDER
     Dosage: 1 DF, QD
  8. FUMAFER [Concomitant]
     Dosage: 66 MG, BID
     Route: 048
  9. SPECIAFOLDINE [Concomitant]
     Dosage: 5 MG, BID
     Route: 048
  10. TAHOR [Concomitant]
     Dosage: 40 MG, QD
     Dates: end: 20100525
  11. ATENOLOL [Suspect]
     Dosage: 25 MG, QD
     Route: 048
     Dates: start: 20100602, end: 20100614
  12. DISCOTRINE [Suspect]
     Dosage: 10 MG/ 24 HOURS
     Route: 062
     Dates: end: 20100523
  13. XYZAL [Concomitant]
     Dosage: 5 MG, QD
     Route: 048
  14. ADANCOR [Suspect]
     Dosage: UNK
     Route: 048
     Dates: end: 20100523
  15. ADANCOR [Suspect]
     Dosage: UNK
     Route: 048
     Dates: start: 20100526, end: 20100527
  16. ATENOLOL [Suspect]
     Dosage: 25 MG, QD
     Route: 048
     Dates: end: 20100523
  17. RAMIPRIL [Suspect]
     Dosage: 5 MG, QD
     Route: 048
     Dates: end: 20100523
  18. CORDARONE [Concomitant]
     Dosage: 200 MG, QD
     Route: 048
  19. PREVISCAN [Concomitant]
     Dosage: 5 MG, QD
     Route: 048

REACTIONS (11)
  - ASPARTATE AMINOTRANSFERASE INCREASED [None]
  - BRADYCARDIA [None]
  - PYREXIA [None]
  - DECREASED APPETITE [None]
  - ALANINE AMINOTRANSFERASE INCREASED [None]
  - BRONCHIAL OBSTRUCTION [None]
  - HYPOTENSION [None]
  - GAMMA-GLUTAMYLTRANSFERASE INCREASED [None]
  - ASTHENIA [None]
  - WRONG TECHNIQUE IN DRUG USAGE PROCESS [None]
  - FALL [None]
